FAERS Safety Report 6054730-9 (Version None)
Quarter: 2009Q1

REPORT INFORMATION
  Report Type: 
  Country: None (occurrence: None)
  Receive Date: 20090128
  Receipt Date: 20090119
  Transmission Date: 20090719
  Serious: Yes (Hospitalization)
  Sender: FDA-Public Use
  Company Number: JP-BRISTOL-MYERS SQUIBB COMPANY-14483903

PATIENT
  Age: 68 Year
  Sex: Male
  Weight: 46 kg

DRUGS (2)
  1. ERBITUX [Suspect]
     Indication: COLORECTAL CANCER RECURRENT
     Dosage: 1ST INF:03DEC08(580MG/M2) 2ND INF:11DEC08(360MG/M2) MOST RECENT INF:09JAN09(360MG/M2)
     Route: 041
     Dates: start: 20081203
  2. IRINOTECAN HCL [Suspect]
     Indication: COLORECTAL CANCER RECURRENT
     Dosage: 1ST INF:03DEC08 MOST RECENT INF: 09JAN09
     Route: 042
     Dates: start: 20081203

REACTIONS (2)
  - ANOREXIA [None]
  - NAUSEA [None]
